FAERS Safety Report 5419096-3 (Version None)
Quarter: 2007Q3

REPORT INFORMATION
  Report Type: 
  Country: None (occurrence: None)
  Receive Date: 20070820
  Receipt Date: 20070809
  Transmission Date: 20080115
  Serious: Yes (Hospitalization)
  Sender: FDA-Public Use
  Company Number: NL-ELI_LILLY_AND_COMPANY-NL200708002723

PATIENT
  Age: 27 Year
  Sex: Male

DRUGS (3)
  1. OLANZAPINE [Suspect]
     Indication: PERSONALITY DISORDER
     Dosage: 5 MG, UNK
     Dates: start: 20040101, end: 20070809
  2. ZOLOFT [Concomitant]
  3. LORAZEPAM [Concomitant]
     Dosage: 2 MG, UNK

REACTIONS (1)
  - INTESTINAL INFARCTION [None]
